FAERS Safety Report 6227660-7 (Version None)
Quarter: 2009Q2

REPORT INFORMATION
  Report Type: 
  Country: None (occurrence: None)
  Receive Date: 20090612
  Receipt Date: 20090604
  Transmission Date: 20091009
  Serious: Yes (Hospitalization)
  Sender: FDA-Public Use
  Company Number: US-BIOGENIDEC-2009BI017004

PATIENT
  Age: 37 Year
  Sex: Female

DRUGS (3)
  1. AVONEX [Suspect]
     Indication: MULTIPLE SCLEROSIS
     Route: 030
     Dates: start: 20030101
  2. AVONEX [Suspect]
     Route: 030
  3. SOMA COMPOUND W/ CODEINE [Concomitant]
     Indication: MIGRAINE
     Route: 048

REACTIONS (2)
  - LOSS OF CONSCIOUSNESS [None]
  - MULTIPLE SCLEROSIS RELAPSE [None]
